FAERS Safety Report 6635955-8 (Version None)
Quarter: 2010Q1

REPORT INFORMATION
  Report Type: 
  Country: None (occurrence: None)
  Receive Date: 20100316
  Receipt Date: 20100308
  Transmission Date: 20100710
  Serious: Yes (Hospitalization)
  Sender: FDA-Public Use
  Company Number: US-BRISTOL-MYERS SQUIBB COMPANY-15007925

PATIENT
  Age: 59 Year
  Sex: Male
  Weight: 67 kg

DRUGS (5)
  1. CISPLATIN [Suspect]
     Indication: LUNG NEOPLASM MALIGNANT
     Dosage: TDD:138MG EVERY 3 WEEKS
     Route: 042
     Dates: start: 20090925, end: 20100122
  2. PEMETREXED DISODIUM [Suspect]
     Indication: LUNG NEOPLASM MALIGNANT
     Dosage: TDD:925 MG EVERY 3 WEEKS
     Route: 042
     Dates: start: 20090925, end: 20100122
  3. AXITINIB [Suspect]
     Indication: LUNG NEOPLASM MALIGNANT
     Dosage: TDD:10MG
     Route: 048
     Dates: start: 20090925
  4. FOLIC ACID [Concomitant]
     Dates: start: 20090901
  5. KEPPRA [Concomitant]
     Dates: start: 20090806

REACTIONS (2)
  - DEHYDRATION [None]
  - PRESYNCOPE [None]
